FAERS Safety Report 5024563-0 (Version None)
Quarter: 2006Q2

REPORT INFORMATION
  Report Type: 
  Country: None (occurrence: None)
  Receive Date: 20060607
  Receipt Date: 20060524
  Transmission Date: 20061013
  Serious: Yes (Hospitalization)
  Sender: FDA-Public Use
  Company Number: 2006068328

PATIENT
  Sex: Male

DRUGS (1)
  1. ZYVOX [Suspect]
     Indication: PNEUMONIA STAPHYLOCOCCAL
     Dosage: 1200 MG, ORAL
     Route: 048
     Dates: start: 20060521, end: 20060521

REACTIONS (3)
  - HALLUCINATION [None]
  - HYPOAESTHESIA [None]
  - TINNITUS [None]
